FAERS Safety Report 23048323 (Version 1)
Quarter: 2023Q4

REPORT INFORMATION
  Report Type: Spontaneous
  Country: AU (occurrence: AU)
  Receive Date: 20231010
  Receipt Date: 20231010
  Transmission Date: 20240109
  Serious: Yes (Other)
  Sender: FDA-Public Use
  Company Number: AU-Accord-383851

PATIENT
  Age: 61 Year
  Sex: Male
  Weight: 70.5 kg

DRUGS (47)
  1. CARBOPLATIN [Suspect]
     Active Substance: CARBOPLATIN
     Indication: B-cell lymphoma refractory
     Dosage: 700 MG, ONCE
     Route: 042
     Dates: start: 20201028
  2. CISPLATIN [Suspect]
     Active Substance: CISPLATIN
     Indication: B-cell lymphoma refractory
     Dosage: 145 MG, ONCE
     Route: 042
     Dates: start: 20201002
  3. ETOPOSIDE [Suspect]
     Active Substance: ETOPOSIDE
     Indication: B-cell lymphoma refractory
     Dosage: 200 MG, ONCE
     Route: 042
     Dates: start: 20201027
  4. GEMCITABINE [Suspect]
     Active Substance: GEMCITABINE
     Indication: B-cell lymphoma refractory
     Dosage: ONCE
     Route: 042
     Dates: start: 20201002
  5. DEXAMETHASONE [Suspect]
     Active Substance: DEXAMETHASONE
     Indication: B-cell lymphoma refractory
     Dosage: 40 MG, ONCE
     Route: 048
     Dates: start: 20201001
  6. IFOSFAMIDE [Suspect]
     Active Substance: IFOSFAMIDE
     Indication: B-cell lymphoma refractory
     Dosage: 3280 MG, ONCE
     Route: 042
     Dates: start: 20201028
  7. MESNA [Suspect]
     Active Substance: MESNA
     Indication: B-cell lymphoma refractory
     Dosage: 9840 MG, CONT, 24 HOURS
     Dates: start: 20201028
  8. RITUXIMAB [Suspect]
     Active Substance: RITUXIMAB
     Indication: B-cell lymphoma refractory
     Dosage: 725 MG, ONCE
     Route: 042
     Dates: start: 20201001
  9. TOCILIZUMAB [Suspect]
     Active Substance: TOCILIZUMAB
     Indication: B-cell lymphoma refractory
     Dosage: 8 MG/KG
     Route: 042
     Dates: start: 20201204
  10. ATOVAQUONE [Concomitant]
     Active Substance: ATOVAQUONE
     Indication: Stomatitis
     Dates: start: 20201130, end: 20210410
  11. COCAINE [Concomitant]
     Active Substance: COCAINE
     Indication: Analgesic therapy
     Dates: start: 20201203
  12. CYCLOPHOSPHAMIDE [Concomitant]
     Active Substance: CYCLOPHOSPHAMIDE
     Indication: Chemotherapy
     Dosage: ONCE
     Dates: start: 20201127, end: 20201127
  13. DOCUSATE [Concomitant]
     Active Substance: DOCUSATE
     Indication: Prophylaxis
     Dates: start: 20201028
  14. FENTANYL [Concomitant]
     Active Substance: FENTANYL
     Indication: Pain
     Dates: start: 20211129, end: 20211129
  15. FILGRASTIM [Concomitant]
     Active Substance: FILGRASTIM
     Indication: Neutropenia
     Dates: start: 20210207, end: 20210326
  16. FLUDARABINE [Concomitant]
     Active Substance: FLUDARABINE PHOSPHATE
     Indication: Chemotherapy
     Dosage: ONCE
     Dates: start: 20201125, end: 20201125
  17. LIDOCAINE HYDROCHLORIDE [Concomitant]
     Active Substance: LIDOCAINE HYDROCHLORIDE
     Indication: Stomatitis
     Dosage: OROMUCOSAL VISCOUS GEL
     Dates: start: 20201129, end: 20211130
  18. LORATADINE [Concomitant]
     Active Substance: LORATADINE
     Indication: Hypersensitivity
     Dates: start: 20201027, end: 20210305
  19. METOCLOPRAMIDE [Concomitant]
     Active Substance: METOCLOPRAMIDE
     Indication: Nausea
     Dates: start: 20210130, end: 20210212
  20. METHOXYFLURANE [Concomitant]
     Active Substance: METHOXYFLURANE
     Indication: Pain
     Dosage: LIQUID WITH INHALATION DEVICE
     Dates: start: 20210209, end: 20210209
  21. MORPHINE [Concomitant]
     Active Substance: MORPHINE
     Indication: Pain
     Dates: start: 20210207, end: 20210209
  22. MOVICOL [Concomitant]
     Active Substance: POLYETHYLENE GLYCOL 3350\POTASSIUM CHLORIDE\SODIUM BICARBONATE\SODIUM CHLORIDE
     Indication: Prophylaxis
     Dosage: ONCE
     Dates: start: 20201125, end: 20201125
  23. ONDANSETRON [Concomitant]
     Active Substance: ONDANSETRON
     Indication: Nausea
     Dates: start: 20201128, end: 20210329
  24. OXYCODONE HYDROCHLORIDE [Concomitant]
     Active Substance: OXYCODONE HYDROCHLORIDE
     Indication: Pain
     Dates: start: 20200301, end: 20210410
  25. ACETAMINOPHEN [Concomitant]
     Active Substance: ACETAMINOPHEN
     Indication: Pain
     Dosage: STRENGTH: 500 MG, ONCE
     Dates: start: 20201126, end: 20201126
  26. PANTOPRAZOLE [Concomitant]
     Active Substance: PANTOPRAZOLE
     Indication: Antiviral prophylaxis
     Dates: start: 20210206, end: 20210210
  27. PIPERACILLIN AND TAZOBACTAM [Concomitant]
     Active Substance: PIPERACILLIN SODIUM\TAZOBACTAM SODIUM
     Indication: Sepsis
     Dates: start: 20210131, end: 20210131
  28. POSACONAZOLE [Concomitant]
     Active Substance: POSACONAZOLE
     Indication: Pneumocystis jirovecii pneumonia
     Dosage: STRENGTH: 300 MG
     Dates: start: 20210129
  29. POTASSIUM [Concomitant]
     Active Substance: POTASSIUM
     Indication: Hypokalaemia
     Dates: start: 20210207, end: 20210207
  30. CALCIUM CHLORIDE\POTASSIUM CHLORIDE\SODIUM CHLORIDE\SODIUM LACTATE [Concomitant]
     Active Substance: CALCIUM CHLORIDE\POTASSIUM CHLORIDE\SODIUM CHLORIDE\SODIUM LACTATE
     Indication: Prophylaxis
     Dates: start: 20201215, end: 20210413
  31. SODIUM CHLORIDE [Concomitant]
     Active Substance: SODIUM CHLORIDE
     Indication: Stomatitis
     Dates: start: 20210129, end: 20210311
  32. SODIUM CHLORIDE [Concomitant]
     Active Substance: SODIUM CHLORIDE
     Indication: Stomatitis
     Dosage: STRENGTH: 0.9 %
     Dates: start: 20210130, end: 20210130
  33. NALOXONE HYDROCHLORIDE\OXYCODONE HYDROCHLORIDE [Concomitant]
     Active Substance: NALOXONE HYDROCHLORIDE\OXYCODONE HYDROCHLORIDE
     Indication: Pain
     Dates: start: 20210206, end: 20210206
  34. TEMAZEPAM [Concomitant]
     Active Substance: TEMAZEPAM
     Indication: Sleep disorder
     Dates: start: 20210130, end: 20210131
  35. THIAMINE [Concomitant]
     Active Substance: THIAMINE
     Indication: Vitamin supplementation
     Dates: start: 20210207, end: 20210209
  36. VALACYCLOVIR HYDROCHLORIDE [Concomitant]
     Active Substance: VALACYCLOVIR HYDROCHLORIDE
     Indication: Stomatitis
     Dates: start: 20200303, end: 20210410
  37. VALACYCLOVIR HYDROCHLORIDE [Concomitant]
     Active Substance: VALACYCLOVIR HYDROCHLORIDE
     Indication: Stomatitis
     Dosage: STRENGTH: 500 MG
     Dates: start: 20210130, end: 20210131
  38. PANTOPRAZOLE [Concomitant]
     Active Substance: PANTOPRAZOLE
     Indication: Antiviral prophylaxis
     Dates: start: 20200301
  39. ONDANSETRON [Concomitant]
     Active Substance: ONDANSETRON
     Indication: Nausea
     Dates: start: 20201208, end: 20210410
  40. LORATADINE [Concomitant]
     Active Substance: LORATADINE
     Indication: Hypersensitivity
     Dosage: STRENGTH: 10 MG
     Dates: start: 20201028
  41. MOVICOL [Concomitant]
     Active Substance: POLYETHYLENE GLYCOL 3350\POTASSIUM CHLORIDE\SODIUM BICARBONATE\SODIUM CHLORIDE
     Indication: Prophylaxis
     Dosage: ONCE
     Dates: start: 20201126, end: 20201126
  42. ACETAMINOPHEN [Concomitant]
     Active Substance: ACETAMINOPHEN
     Indication: Pain
     Dosage: ONCE
     Dates: start: 20201127, end: 20201127
  43. POSACONAZOLE [Concomitant]
     Active Substance: POSACONAZOLE
     Indication: Pneumocystis jirovecii pneumonia
     Dates: start: 20210129, end: 20210131
  44. CALCIUM CHLORIDE\POTASSIUM CHLORIDE\SODIUM CHLORIDE\SODIUM LACTATE [Concomitant]
     Active Substance: CALCIUM CHLORIDE\POTASSIUM CHLORIDE\SODIUM CHLORIDE\SODIUM LACTATE
     Indication: Prophylaxis
     Dates: start: 20210129, end: 20210311
  45. CALCIUM CHLORIDE\POTASSIUM CHLORIDE\SODIUM CHLORIDE\SODIUM LACTATE [Concomitant]
     Active Substance: CALCIUM CHLORIDE\POTASSIUM CHLORIDE\SODIUM CHLORIDE\SODIUM LACTATE
     Indication: Prophylaxis
     Dates: start: 20210206, end: 20210208
  46. CALCIUM CHLORIDE\POTASSIUM CHLORIDE\SODIUM CHLORIDE\SODIUM LACTATE [Concomitant]
     Active Substance: CALCIUM CHLORIDE\POTASSIUM CHLORIDE\SODIUM CHLORIDE\SODIUM LACTATE
     Indication: Prophylaxis
     Dates: start: 20200129, end: 20210129
  47. PIPERACILLIN AND TAZOBACTAM [Concomitant]
     Active Substance: PIPERACILLIN SODIUM\TAZOBACTAM SODIUM
     Indication: Sepsis
     Dates: start: 20210206, end: 20210207

REACTIONS (1)
  - Bone marrow failure [Recovered/Resolved]

NARRATIVE: CASE EVENT DATE: 20210209
